FAERS Safety Report 15191975 (Version 2)
Quarter: 2018Q3

REPORT INFORMATION
  Report Type: Report from Study
  Country: None (occurrence: US)
  Receive Date: 20180724
  Receipt Date: 20180801
  Transmission Date: 20181010
  Serious: Yes (Hospitalization, Other)
  Sender: FDA-Public Use
  Company Number: US-ABBVIE-18K-163-2427207-00

PATIENT
  Age: 34 Year
  Sex: Female
  Weight: 86.26 kg

DRUGS (5)
  1. PENTASA [Concomitant]
     Active Substance: MESALAMINE
     Indication: CROHN^S DISEASE
  2. MARIJUANA [Concomitant]
     Active Substance: CANNABIS SATIVA SUBSP. INDICA TOP
     Indication: PRODUCT USED FOR UNKNOWN INDICATION
  3. FLORA PROBIOTIC [Concomitant]
     Indication: PRODUCT USED FOR UNKNOWN INDICATION
  4. HUMIRA [Suspect]
     Active Substance: ADALIMUMAB
     Indication: CROHN^S DISEASE
     Route: 058
     Dates: start: 2013, end: 201707
  5. HUMIRA [Suspect]
     Active Substance: ADALIMUMAB
     Route: 058
     Dates: start: 201801

REACTIONS (11)
  - Enteritis [Recovered/Resolved]
  - Feeding disorder [Recovered/Resolved]
  - Intestinal obstruction [Recovered/Resolved]
  - Ileal perforation [Recovered/Resolved]
  - Sepsis [Recovered/Resolved]
  - Abdominal infection [Recovered/Resolved]
  - Pathogen resistance [Recovered/Resolved]
  - Clostridium difficile infection [Recovered/Resolved]
  - Crohn^s disease [Recovered/Resolved]
  - Pain in extremity [Recovered/Resolved]
  - Insomnia [Not Recovered/Not Resolved]

NARRATIVE: CASE EVENT DATE: 2013
